FAERS Safety Report 12388743 (Version 1)
Quarter: 2016Q2

REPORT INFORMATION
  Report Type: Spontaneous
  Country: US (occurrence: US)
  Receive Date: 20160520
  Receipt Date: 20160520
  Transmission Date: 20160815
  Serious: Yes (Hospitalization)
  Sender: FDA-Public Use
  Company Number: US-BEH-2016062881

PATIENT
  Sex: Male
  Weight: 83 kg

DRUGS (30)
  1. CALCIUM [Concomitant]
     Active Substance: CALCIUM
  2. PREDNISONE. [Concomitant]
     Active Substance: PREDNISONE
  3. HIZENTRA [Suspect]
     Active Substance: HUMAN IMMUNOGLOBULIN G
     Indication: BRONCHIECTASIS
     Route: 058
     Dates: start: 20140630
  4. PANTOPRAZOLE [Concomitant]
     Active Substance: PANTOPRAZOLE SODIUM
  5. VENTOLIN [Concomitant]
     Active Substance: ALBUTEROL SULFATE
  6. DIPHENHYDRAMINE. [Concomitant]
     Active Substance: DIPHENHYDRAMINE
  7. LMX [Concomitant]
     Active Substance: LIDOCAINE
  8. DOXYCYCLINE. [Concomitant]
     Active Substance: DOXYCYCLINE
  9. GUAIFENESIN. [Concomitant]
     Active Substance: GUAIFENESIN
  10. GLYBURIDE. [Concomitant]
     Active Substance: GLYBURIDE
  11. BACTRIM DS [Concomitant]
     Active Substance: SULFAMETHOXAZOLE\TRIMETHOPRIM
  12. XOLAIR [Concomitant]
     Active Substance: OMALIZUMAB
  13. HIZENTRA [Suspect]
     Active Substance: HUMAN IMMUNOGLOBULIN G
     Indication: ALVEOLITIS ALLERGIC
     Route: 058
     Dates: start: 20140630
  14. EPIPEN [Concomitant]
     Active Substance: EPINEPHRINE
  15. TOBI [Concomitant]
     Active Substance: TOBRAMYCIN
  16. VITAMIN C [Concomitant]
     Active Substance: ASCORBIC ACID
  17. ALEVE [Concomitant]
     Active Substance: NAPROXEN SODIUM
  18. CIPROFLOXACIN. [Concomitant]
     Active Substance: CIPROFLOXACIN
  19. HIZENTRA [Suspect]
     Active Substance: HUMAN IMMUNOGLOBULIN G
     Indication: IMMUNODEFICIENCY COMMON VARIABLE
     Route: 058
     Dates: start: 20140630
  20. AZITHROMYCIN ANHYDROUS. [Concomitant]
     Active Substance: AZITHROMYCIN ANHYDROUS
  21. COLACE [Concomitant]
     Active Substance: DOCUSATE SODIUM
  22. KLONOPIN [Concomitant]
     Active Substance: CLONAZEPAM
  23. ALBUTEROL. [Concomitant]
     Active Substance: ALBUTEROL
  24. METHYLPREDNISOLONE. [Concomitant]
     Active Substance: METHYLPREDNISOLONE
  25. ACETAMINOPHEN. [Concomitant]
     Active Substance: ACETAMINOPHEN
  26. LIDOCAINE / PRILOCAINE [Concomitant]
  27. METFORMIN [Concomitant]
     Active Substance: METFORMIN HYDROCHLORIDE
  28. SYMBICORT [Concomitant]
     Active Substance: BUDESONIDE\FORMOTEROL FUMARATE DIHYDRATE
  29. HIZENTRA [Suspect]
     Active Substance: HUMAN IMMUNOGLOBULIN G
     Indication: ALVEOLITIS ALLERGIC
     Route: 058
     Dates: start: 20140630
  30. QVAR [Concomitant]
     Active Substance: BECLOMETHASONE DIPROPIONATE

REACTIONS (5)
  - Cardiac disorder [Unknown]
  - Atrial fibrillation [Unknown]
  - Lung infection [Unknown]
  - Pneumonia [Unknown]
  - Spinal fracture [Unknown]
